FAERS Safety Report 23827195 (Version 2)
Quarter: 2024Q2

REPORT INFORMATION
  Report Type: Spontaneous
  Country: US (occurrence: US)
  Receive Date: 20240507
  Receipt Date: 20240514
  Transmission Date: 20240716
  Serious: Yes (Hospitalization)
  Sender: FDA-Public Use
  Company Number: US-AMGEN-USASP2024085740

PATIENT
  Sex: Female

DRUGS (1)
  1. NEULASTA [Suspect]
     Active Substance: PEGFILGRASTIM
     Indication: Product used for unknown indication
     Dosage: UNK
     Route: 065

REACTIONS (5)
  - Oxygen saturation decreased [Recovering/Resolving]
  - Full blood count decreased [Recovering/Resolving]
  - Muscle tightness [Unknown]
  - Pain in extremity [Not Recovered/Not Resolved]
  - Device issue [Unknown]
